FAERS Safety Report 8339738-2 (Version None)
Quarter: 2012Q2

REPORT INFORMATION
  Report Type: 
  Country: None (occurrence: None)
  Receive Date: 20120507
  Receipt Date: 20120428
  Transmission Date: 20120825
  Serious: Yes (Hospitalization)
  Sender: FDA-Public Use
  Company Number: US-BAYER-2011-083717

PATIENT
  Age: 36 Year
  Sex: Female
  Weight: 81.63 kg

DRUGS (13)
  1. YAZ [Suspect]
     Dosage: UNK
     Dates: start: 20000101, end: 20080101
  2. TRICOR [Concomitant]
     Dosage: 145 MG, QD
  3. FISH OIL [Concomitant]
     Dosage: UNK UNK, BID
  4. COREG [Concomitant]
     Dosage: 80 MG, QD
  5. NEXIUM [Concomitant]
     Dosage: 40 MG, QD
  6. METFORMIN HCL [Concomitant]
     Dosage: 1000 MG, BID
  7. LISINOPRIL [Concomitant]
     Dosage: 20 MG, QD
  8. PERCOCET [Concomitant]
     Dosage: UNK
  9. POTASSIUM CHLORIDE [Concomitant]
     Dosage: 10 MEQ, BID
  10. GLUCOTROL XL [Concomitant]
     Dosage: 10 MG, QD
  11. LOVAZA [Concomitant]
     Dosage: 1 G, 2 CAPSULE BID
  12. GLIPIZIDE [Concomitant]
     Dosage: 10 MG, QD
  13. LASIX [Concomitant]
     Dosage: 40 MG, BID

REACTIONS (7)
  - CHOLECYSTITIS CHRONIC [None]
  - EMOTIONAL DISTRESS [None]
  - PAIN [None]
  - CHOLECYSTECTOMY [None]
  - INJURY [None]
  - ANHEDONIA [None]
  - ANXIETY [None]
